FAERS Safety Report 13129911 (Version 1)
Quarter: 2017Q1

REPORT INFORMATION
  Report Type: Spontaneous
  Country: US (occurrence: US)
  Receive Date: 20170118
  Receipt Date: 20170118
  Transmission Date: 20170428
  Serious: Yes (Other)
  Sender: FDA-Public Use
  Company Number: None

PATIENT
  Age: 27 Year
  Sex: Female
  Weight: 58.97 kg

DRUGS (2)
  1. PRE-NATAL VITAMINS [Concomitant]
  2. MIRENA [Suspect]
     Active Substance: LEVONORGESTREL

REACTIONS (5)
  - Abdominal distension [None]
  - Menstrual disorder [None]
  - Libido decreased [None]
  - Alopecia [None]
  - Acne [None]

NARRATIVE: CASE EVENT DATE: 20161128
